FAERS Safety Report 6684237-7 (Version None)
Quarter: 2010Q2

REPORT INFORMATION
  Report Type: 
  Country: None (occurrence: None)
  Receive Date: 20100416
  Receipt Date: 20100407
  Transmission Date: 20101027
  Serious: Yes (Other)
  Sender: FDA-Public Use
  Company Number: US-JNJFOC-20071000394

PATIENT
  Sex: Female
  Weight: 56.25 kg

DRUGS (3)
  1. ORTHO EVRA [Suspect]
     Indication: CONTRACEPTION
     Route: 062
  2. ORTHO EVRA [Suspect]
     Route: 062
  3. YAZ [Suspect]
     Indication: MENORRHAGIA
     Dates: start: 20060612

REACTIONS (6)
  - ADNEXA UTERI MASS [None]
  - ENDOMETRIOSIS [None]
  - MENORRHAGIA [None]
  - METRORRHAGIA [None]
  - PELVIC PAIN [None]
  - UTERINE POLYP [None]
